FAERS Safety Report 8342062-5 (Version None)
Quarter: 2012Q2

REPORT INFORMATION
  Report Type: 
  Country: None (occurrence: None)
  Receive Date: 20120507
  Receipt Date: 20120424
  Transmission Date: 20120825
  Serious: Yes (Other)
  Sender: FDA-Public Use
  Company Number: US-MYLANLABS-2012S1008784

PATIENT
  Age: 7 Decade
  Sex: Male

DRUGS (20)
  1. CIPROFLOXACIN [Suspect]
     Indication: BRONCHIECTASIS
     Route: 048
     Dates: start: 20100101
  2. CIPROFLOXACIN [Suspect]
     Indication: BRONCHITIS
     Route: 048
     Dates: start: 20100101
  3. CIPROFLOXACIN [Suspect]
     Route: 065
     Dates: start: 20100901
  4. CIPROFLOXACIN [Suspect]
     Route: 065
     Dates: start: 20100901
  5. CIPROFLOXACIN [Suspect]
     Route: 065
     Dates: start: 20110301
  6. CEFEPIME [Concomitant]
     Indication: BRONCHITIS
     Route: 042
     Dates: start: 20110502, end: 20110526
  7. PREDNISONE [Concomitant]
     Indication: IMMUNOSUPPRESSANT DRUG THERAPY
     Dosage: 5MG DAILY
     Route: 065
  8. IPRATROPIUM BROMIDE [Concomitant]
     Route: 055
  9. CIPROFLOXACIN [Suspect]
     Route: 065
     Dates: end: 20110526
  10. ARFORMOTEROL TARTRATE [Concomitant]
     Route: 055
  11. CIPROFLOXACIN [Suspect]
     Route: 065
     Dates: end: 20110526
  12. CEFTAZIDIME [Concomitant]
     Indication: BRONCHITIS
     Route: 065
     Dates: start: 20110301
  13. AZATHIOPRINE [Concomitant]
     Indication: IMMUNOSUPPRESSANT DRUG THERAPY
     Dosage: 100MG DAILY
     Route: 065
  14. OMEPRAZOLE [Concomitant]
     Route: 065
  15. METOPROLOL TARTRATE [Concomitant]
     Route: 065
  16. COTRIM [Concomitant]
     Route: 065
  17. ITRACONAZOLE [Concomitant]
     Route: 065
  18. EZETIMIBE [Concomitant]
     Dosage: 10MG DAILY
     Route: 065
  19. CIPROFLOXACIN [Suspect]
     Route: 065
     Dates: start: 20110301
  20. CYCLOSPORINE [Concomitant]
     Indication: IMMUNOSUPPRESSANT DRUG THERAPY
     Dosage: TARGET TROUGH LEVEL 100-150 NG/ML
     Route: 065

REACTIONS (7)
  - FATIGUE [None]
  - ARTHRALGIA [None]
  - NAUSEA [None]
  - MYALGIA [None]
  - RENAL FAILURE ACUTE [None]
  - ASTHENIA [None]
  - VOMITING [None]
